FAERS Safety Report 19724168 (Version 2)
Quarter: 2021Q3

REPORT INFORMATION
  Report Type: Report from Study
  Country: US (occurrence: US)
  Receive Date: 20210819
  Receipt Date: 20210824
  Transmission Date: 20211014
  Serious: Yes (Hospitalization, Other)
  Sender: FDA-Public Use
  Company Number: US-TEVA-2021-US-1942428

PATIENT
  Age: 50 Year
  Sex: Male

DRUGS (8)
  1. PREDNISONE. [Suspect]
     Active Substance: PREDNISONE
     Indication: PULMONARY SARCOIDOSIS
     Dosage: 15 MILLIGRAM DAILY;
     Route: 065
  2. PREDNISONE. [Suspect]
     Active Substance: PREDNISONE
     Dosage: 30 MILLIGRAM DAILY;
     Route: 065
  3. PREDNISONE. [Suspect]
     Active Substance: PREDNISONE
     Indication: MYELITIS TRANSVERSE
     Dosage: 10 MILLIGRAM DAILY;
     Route: 065
  4. MYCOPHENOLATE MOFETIL. [Suspect]
     Active Substance: MYCOPHENOLATE MOFETIL
     Indication: NEUROSARCOIDOSIS
     Route: 065
  5. INFLIXIMAB [Suspect]
     Active Substance: INFLIXIMAB
     Indication: PULMONARY SARCOIDOSIS
     Route: 065
  6. METHOTREXATE. [Suspect]
     Active Substance: METHOTREXATE
     Indication: NEUROSARCOIDOSIS
     Route: 065
  7. METHYLPREDNISOLONE. [Concomitant]
     Active Substance: METHYLPREDNISOLONE
     Indication: MYELITIS TRANSVERSE
     Route: 065
  8. TOFACITINIB [Concomitant]
     Active Substance: TOFACITINIB
     Indication: PULMONARY SARCOIDOSIS
     Dosage: 10 MILLIGRAM DAILY;
     Route: 048

REACTIONS (2)
  - Treatment failure [Unknown]
  - Cellulitis [Unknown]
